FAERS Safety Report 5657391-3 (Version None)
Quarter: 2008Q1

REPORT INFORMATION
  Report Type: 
  Country: None (occurrence: None)
  Receive Date: 20080310
  Receipt Date: 20080227
  Transmission Date: 20080703
  Serious: Yes (Hospitalization)
  Sender: FDA-Public Use
  Company Number: NL-PFIZER INC-2007047628

PATIENT
  Sex: Male
  Weight: 65 kg

DRUGS (4)
  1. BLINDED UK-427,857 [Suspect]
     Indication: HIV TEST POSITIVE
     Route: 048
  2. COMBIVIR [Concomitant]
     Route: 048
  3. TENOFOVIR [Concomitant]
     Route: 048
  4. FUZEON [Concomitant]
     Route: 048

REACTIONS (1)
  - POLYNEUROPATHY [None]
